FAERS Safety Report 7948299-9 (Version None)
Quarter: 2011Q4

REPORT INFORMATION
  Report Type: 
  Country: None (occurrence: None)
  Receive Date: 20111125
  Receipt Date: 20111118
  Transmission Date: 20120403
  Serious: Yes (Hospitalization)
  Sender: FDA-Public Use
  Company Number: JPI-P-018361

PATIENT
  Age: 45 Year
  Sex: Female

DRUGS (2)
  1. XYREM [Suspect]
     Indication: NARCOLEPSY
     Dosage: 4.5 GM (2.25 GM, 2 IN 1 D), ORAL, (UNSPECIFIED TITRATING DOSE , ORAL, 3.75-4.5 GRAMS TWICE NIGHTLY,
     Route: 048
     Dates: start: 20070830
  2. XYREM [Suspect]
     Indication: NARCOLEPSY
     Dosage: 4.5 GM (2.25 GM, 2 IN 1 D), ORAL, (UNSPECIFIED TITRATING DOSE , ORAL, 3.75-4.5 GRAMS TWICE NIGHTLY,
     Route: 048
     Dates: start: 20110630

REACTIONS (1)
  - MENTAL DISORDER [None]
